FAERS Safety Report 8547812-0 (Version None)
Quarter: 2012Q3

REPORT INFORMATION
  Report Type: 
  Country: None (occurrence: None)
  Receive Date: 20120727
  Receipt Date: 20120206
  Transmission Date: 20120928
  Serious: Yes (Life-Threatening)
  Sender: FDA-Public Use
  Company Number: US-ASTRAZENECA-2012SE07851

PATIENT
  Age: 21 Year
  Sex: Male

DRUGS (3)
  1. TRAZODONE HCL [Concomitant]
  2. SEROQUEL XR [Suspect]
     Indication: DEPRESSION
     Route: 048
  3. KLONOPIN [Concomitant]

REACTIONS (1)
  - SUICIDE ATTEMPT [None]
